FAERS Safety Report 8985366 (Version 2)
Quarter: 2013Q2

REPORT INFORMATION
  Report Type: Spontaneous
  Country: JP (occurrence: JP)
  Receive Date: 20121226
  Receipt Date: 20130522
  Transmission Date: 20140414
  Serious: Yes (Death, Life-Threatening, Hospitalization)
  Sender: FDA-Public Use
  Company Number: JP-BRISTOL-MYERS SQUIBB COMPANY-17136706

PATIENT
  Age: 75 Year
  Sex: Female
  Weight: 65 kg

DRUGS (7)
  1. ORENCIA FOR INJ 250 MG/VIAL [Suspect]
     Indication: RHEUMATOID ARTHRITIS
     Route: 041
     Dates: start: 20111129, end: 20120903
  2. METHOTREXATE [Suspect]
     Indication: RHEUMATOID ARTHRITIS
     Route: 048
     Dates: start: 20110806, end: 20121001
  3. PREDNISOLONE [Suspect]
     Route: 048
     Dates: start: 20110729, end: 20121001
  4. BAYASPIRIN [Suspect]
     Route: 048
     Dates: start: 20111213, end: 20121029
  5. INDOMETACIN [Concomitant]
     Indication: RHEUMATOID ARTHRITIS
     Route: 048
     Dates: start: 20110729, end: 20121018
  6. GASPORT [Concomitant]
     Route: 048
     Dates: start: 20110729, end: 20121018
  7. FOLIAMIN [Concomitant]
     Route: 048
     Dates: start: 20120806, end: 20121001

REACTIONS (4)
  - Gastrointestinal haemorrhage [Fatal]
  - Pneumocystis jirovecii pneumonia [Not Recovered/Not Resolved]
  - Pneumonia cytomegaloviral [Recovered/Resolved]
  - Pneumonia pseudomonas aeruginosa [Not Recovered/Not Resolved]
